FAERS Safety Report 7706983-6 (Version None)
Quarter: 2011Q3

REPORT INFORMATION
  Report Type: 
  Country: None (occurrence: None)
  Receive Date: 20110824
  Receipt Date: 20110822
  Transmission Date: 20111222
  Serious: No
  Sender: FDA-Public Use
  Company Number: US-PFIZER INC-2011194116

PATIENT
  Sex: Female
  Weight: 77.1 kg

DRUGS (1)
  1. PREMARIN [Suspect]
     Indication: ATROPHIC VULVOVAGINITIS
     Dosage: UNK, 1X/DAY
     Route: 067
     Dates: start: 20110810

REACTIONS (2)
  - URTICARIA [None]
  - RASH GENERALISED [None]
